FAERS Safety Report 4638690-0 (Version None)
Quarter: 2005Q2

REPORT INFORMATION
  Report Type: 
  Country: None (occurrence: None)
  Receive Date: 20050328
  Receipt Date: 20050127
  Transmission Date: 20051028
  Serious: No
  Sender: FDA-Public Use
  Company Number: US_0502112078

PATIENT
  Age: 72 Year
  Sex: Female
  Weight: 52 kg

DRUGS (3)
  1. STRATTERA [Suspect]
     Dosage: 40 MG
     Dates: start: 20040701
  2. DILANTIN [Concomitant]
  3. AMITRIPTYLINE [Concomitant]

REACTIONS (5)
  - BALANCE DISORDER [None]
  - CONSTIPATION [None]
  - METABOLIC DISORDER [None]
  - VISION BLURRED [None]
  - WEIGHT DECREASED [None]
